FAERS Safety Report 4759992-3 (Version None)
Quarter: 2005Q3

REPORT INFORMATION
  Report Type: 
  Country: None (occurrence: None)
  Receive Date: 20050831
  Receipt Date: 20050831
  Transmission Date: 20060218
  Serious: No
  Sender: FDA-Public Use
  Company Number: None

PATIENT
  Age: 72 Year
  Sex: Male
  Weight: 93.4 kg

DRUGS (8)
  1. AMIODARONE [Suspect]
     Indication: VENTRICULAR FIBRILLATION
     Dosage: 200MG QID X 14 DAY, BID X 14 DAYS; THEN, 200MG QD
     Dates: start: 20010201, end: 20050819
  2. CARVEDILOL [Suspect]
     Indication: CARDIAC FAILURE CONGESTIVE
     Dosage: 25MG BID PO
     Route: 048
     Dates: start: 20030630
  3. SIMVASTATIN [Suspect]
     Indication: HYPERCHOLESTEROLAEMIA
     Dosage: 80MG QD PO
     Route: 048
     Dates: start: 20030630
  4. PENTOSAN POLYSULFATE NA 100MG [Suspect]
     Indication: CYSTITIS INTERSTITIAL
     Dosage: 100MG TID PO
     Route: 048
     Dates: start: 20040401
  5. PENTOSAN POLYSULFATE NA [Concomitant]
  6. LORATADINE [Concomitant]
  7. CARVEDILOL [Concomitant]
  8. SIMVASTATIN [Concomitant]

REACTIONS (1)
  - PULMONARY FIBROSIS [None]
